FAERS Safety Report 21907603 (Version 1)
Quarter: 2023Q1

REPORT INFORMATION
  Report Type: Spontaneous
  Country: US (occurrence: US)
  Receive Date: 20230125
  Receipt Date: 20230125
  Transmission Date: 20230418
  Serious: No
  Sender: FDA-Public Use
  Company Number: US-ABBVIE-4249044

PATIENT
  Sex: Male

DRUGS (1)
  1. HUMIRA [Suspect]
     Active Substance: ADALIMUMAB
     Indication: Colitis ulcerative
     Route: 058
     Dates: start: 2020

REACTIONS (7)
  - Skin discolouration [Unknown]
  - Erythema [Unknown]
  - Urinary tract infection [Unknown]
  - Alopecia [Unknown]
  - Ear infection [Unknown]
  - Skin swelling [Unknown]
  - Skin disorder [Unknown]
